FAERS Safety Report 9512214 (Version 2)
Quarter: 2013Q4

REPORT INFORMATION
  Report Type: Spontaneous
  Country: CL (occurrence: CL)
  Receive Date: 20130910
  Receipt Date: 20131115
  Transmission Date: 20140711
  Serious: Yes (Hospitalization)
  Sender: FDA-Public Use
  Company Number: PHHY2013CL099282

PATIENT
  Age: 67 Year
  Sex: Female

DRUGS (1)
  1. AFINITOR [Suspect]
     Indication: BREAST CANCER METASTATIC
     Dosage: 10 MG, QD
     Route: 048
     Dates: start: 20130805, end: 20130820

REACTIONS (4)
  - Cholecystitis [Recovered/Resolved]
  - Transaminases increased [Unknown]
  - Blood creatinine increased [Unknown]
  - Bronchitis [Recovered/Resolved]
